FAERS Safety Report 25470798 (Version 2)
Quarter: 2025Q3

REPORT INFORMATION
  Report Type: Spontaneous
  Country: US (occurrence: US)
  Receive Date: 20250624
  Receipt Date: 20250810
  Transmission Date: 20251020
  Serious: Yes (Hospitalization, Other)
  Sender: ALEXION PHARMACEUTICALS
  Company Number: US-AstraZeneca-CH-00895394A

PATIENT
  Sex: Female

DRUGS (1)
  1. TAGRISSO [Suspect]
     Active Substance: OSIMERTINIB
     Route: 065

REACTIONS (6)
  - Large intestinal stenosis [Unknown]
  - Metastases to spine [Unknown]
  - Macular degeneration [Unknown]
  - Illness [Unknown]
  - Weight decreased [Unknown]
  - Malnutrition [Unknown]
